FAERS Safety Report 8070048-7 (Version None)
Quarter: 2012Q1

REPORT INFORMATION
  Report Type: 
  Country: None (occurrence: None)
  Receive Date: 20120119
  Receipt Date: 20120104
  Transmission Date: 20120608
  Serious: Yes (Other)
  Sender: FDA-Public Use
  Company Number: 1000026447

PATIENT
  Age: 49 Year
  Sex: Female

DRUGS (10)
  1. HYDROCHLOROTHIAZIDE [Concomitant]
  2. TRAZODONE (TRAZODONE) (TRAZODONE) [Concomitant]
  3. KLONOPIN [Concomitant]
  4. MVI (MVI) (MVI) [Concomitant]
  5. PRAVASTATIN [Concomitant]
  6. VIIBRYD [Suspect]
     Indication: DEPRESSION
     Dosage: 40 MG (40 MG, 1 IN 1 D), ORAL
     Route: 048
     Dates: start: 20110101, end: 20120102
  7. SYNTHROID (LEVOTHYROXINE SODIUM) (LEVOTHYROXINE SODIUM) [Concomitant]
  8. VIIBRYD [Suspect]
     Indication: DEPRESSION
     Dosage: 10 MG (10 MG, 1 IN 1 D), ORAL;  20 MG (20 MG, 1 IN 1 D), ORAL
     Route: 048
     Dates: start: 20111101, end: 20110101
  9. VIIBRYD [Suspect]
     Indication: DEPRESSION
     Dosage: 10 MG (10 MG, 1 IN 1 D), ORAL;  20 MG (20 MG, 1 IN 1 D), ORAL
     Route: 048
     Dates: start: 20110101, end: 20110101
  10. FISH OIL (FISH OIL) (FISH OIL) [Concomitant]

REACTIONS (7)
  - SUICIDAL IDEATION [None]
  - CONDITION AGGRAVATED [None]
  - DEPRESSION [None]
  - CRYING [None]
  - DIARRHOEA [None]
  - DECREASED APPETITE [None]
  - PSYCHOMOTOR HYPERACTIVITY [None]
